FAERS Safety Report 6257308-7 (Version None)
Quarter: 2009Q3

REPORT INFORMATION
  Report Type: 
  Country: None (occurrence: None)
  Receive Date: 20090706
  Receipt Date: 20090625
  Transmission Date: 20100115
  Serious: Yes (Other)
  Sender: FDA-Public Use
  Company Number: GB-ROCHE-640637

PATIENT
  Age: 51 Year
  Sex: Female

DRUGS (1)
  1. CELLCEPT [Suspect]
     Route: 065
     Dates: start: 20070801

REACTIONS (1)
  - ILL-DEFINED DISORDER [None]
